FAERS Safety Report 10579538 (Version 2)
Quarter: 2014Q4

REPORT INFORMATION
  Report Type: Report from Study
  Country: SE (occurrence: SE)
  Receive Date: 20141112
  Receipt Date: 20141112
  Transmission Date: 20150529
  Serious: Yes (Disabling)
  Sender: FDA-Public Use
  Company Number: SE-ELI_LILLY_AND_COMPANY-SE201409006678

PATIENT
  Age: 55 Year
  Sex: Male
  Weight: 67.2 kg

DRUGS (5)
  1. VALPROIC ACID. [Concomitant]
     Active Substance: VALPROIC ACID
     Indication: AFFECTIVE DISORDER
     Dosage: UNK
     Dates: start: 20140527
  2. ESOMEPRAZOLE [Concomitant]
     Active Substance: ESOMEPRAZOLE
     Indication: GASTRITIS
     Dosage: UNK
     Dates: start: 20140527
  3. FLUOXETINE [Concomitant]
     Active Substance: FLUOXETINE\FLUOXETINE HYDROCHLORIDE
     Indication: DEPRESSION
     Dosage: UNK
     Dates: start: 20140527
  4. TRIHEXYPHENIDYL [Concomitant]
     Active Substance: TRIHEXYPHENIDYL
     Indication: ADVERSE DRUG REACTION
     Dosage: UNK
     Dates: start: 20131212
  5. OLANZAPINE LONG-ACTING IM [Suspect]
     Active Substance: OLANZAPINE PAMOATE
     Indication: SCHIZOPHRENIA
     Dosage: 405 MG, 14TH DAY
     Route: 030
     Dates: start: 20131220

REACTIONS (2)
  - Dizziness [Recovered/Resolved]
  - Fatigue [Recovered/Resolved]

NARRATIVE: CASE EVENT DATE: 20140917
